FAERS Safety Report 8687982 (Version 3)
Quarter: 2012Q4

REPORT INFORMATION
  Report Type: Report from Study
  Country: AU (occurrence: AU)
  Receive Date: 20120727
  Receipt Date: 20121015
  Transmission Date: 20130627
  Serious: Yes (Hospitalization)
  Sender: FDA-Public Use
  Company Number: AU-BRISTOL-MYERS SQUIBB COMPANY-16784803

PATIENT
  Age: 73 Year
  Sex: Male
  Weight: 62 kg

DRUGS (8)
  1. PACLITAXEL [Suspect]
     Indication: GASTRIC CANCER
     Route: 042
     Dates: start: 20120201, end: 20120509
  2. CLEXANE [Concomitant]
     Dates: start: 201107
  3. PROMETHAZINE [Concomitant]
     Dates: start: 20120509, end: 20120509
  4. RANITIDINE [Concomitant]
     Dates: start: 20120509, end: 20120509
  5. GRANISETRON [Concomitant]
     Dates: start: 20120509, end: 20120509
  6. DEXAMETHASONE [Concomitant]
     Dates: start: 20120509, end: 20120509
  7. OMEPRAZOLE [Concomitant]
     Indication: GASTROOESOPHAGEAL REFLUX DISEASE
     Dates: start: 2011
  8. PERINDOPRIL [Concomitant]
     Indication: HYPERTENSION
     Dates: start: 20120207

REACTIONS (2)
  - Fatigue [Recovered/Resolved]
  - Dyspnoea [Recovered/Resolved]
